FAERS Safety Report 7052738-8 (Version None)
Quarter: 2010Q4

REPORT INFORMATION
  Report Type: 
  Country: None (occurrence: None)
  Receive Date: 20101013
  Receipt Date: 20101005
  Transmission Date: 20110411
  Serious: Yes (Hospitalization)
  Sender: FDA-Public Use
  Company Number: WAES 1009USA05593

PATIENT
  Age: 57 Year
  Sex: Female
  Weight: 74.8435 kg

DRUGS (3)
  1. ZOCOR [Suspect]
     Indication: HYPERLIPIDAEMIA
     Dosage: 20 MG/DAILY/PO
     Route: 048
     Dates: start: 20090901, end: 20100901
  2. INFUSION (FORM) TANEZUMAB UNK [Suspect]
     Indication: OSTEOARTHRITIS
     Dosage: PO
     Route: 048
     Dates: start: 20100331, end: 20100526
  3. HYDROCHLOROTHIAZIDE [Concomitant]

REACTIONS (6)
  - CONDITION AGGRAVATED [None]
  - DILATATION INTRAHEPATIC DUCT ACQUIRED [None]
  - GASTRITIS [None]
  - HAEMANGIOMA OF LIVER [None]
  - HEPATITIS [None]
  - HIATUS HERNIA [None]
